FAERS Safety Report 5814347-5 (Version None)
Quarter: 2008Q3

REPORT INFORMATION
  Report Type: 
  Country: None (occurrence: None)
  Receive Date: 20080715
  Receipt Date: 20080630
  Transmission Date: 20090109
  Serious: Yes (Hospitalization)
  Sender: FDA-Public Use
  Company Number: US023389

PATIENT
  Age: 47 Year
  Sex: Female
  Weight: 70.7611 kg

DRUGS (11)
  1. PROVIGIL [Suspect]
     Indication: SOMNOLENCE
     Dosage: 200 MG QAM ORAL
     Route: 048
     Dates: start: 20061001, end: 20080301
  2. DEPAKOTE [Suspect]
     Indication: AFFECTIVE DISORDER
     Dosage: 1000 MG QAM/PM ORAL
     Route: 048
     Dates: start: 19930101, end: 20071001
  3. DEPAKOTE [Suspect]
     Indication: DEPRESSION
     Dosage: 1000 MG QAM/PM ORAL
     Route: 048
     Dates: start: 19930101, end: 20071001
  4. CYMBALTA [Suspect]
     Indication: DEPRESSION
     Dosage: 60 MG QD ORAL
     Route: 048
     Dates: start: 20071101, end: 20080301
  5. CYMBALTA [Suspect]
     Indication: DEPRESSION
     Dosage: 90 MG QD ORAL
     Route: 048
     Dates: start: 20080301
  6. LITHIUM [Concomitant]
  7. XANAX [Concomitant]
  8. VICODIN [Concomitant]
  9. STRATTERA [Concomitant]
  10. CLARITIN /00917501/ [Concomitant]
  11. EFFEXOR	/01233801/ [Concomitant]

REACTIONS (28)
  - ABDOMINAL DISCOMFORT [None]
  - BLISTER [None]
  - CELLULITIS [None]
  - DEHYDRATION [None]
  - DERMATITIS EXFOLIATIVE [None]
  - DIARRHOEA [None]
  - ELECTROLYTE IMBALANCE [None]
  - ERYSIPELAS [None]
  - EXCORIATION [None]
  - FATIGUE [None]
  - GASTROENTERITIS VIRAL [None]
  - INFECTION [None]
  - LOCAL SWELLING [None]
  - PAIN [None]
  - PERIORBITAL OEDEMA [None]
  - PERIVASCULAR DERMATITIS [None]
  - PURPURA [None]
  - PYREXIA [None]
  - RASH PRURITIC [None]
  - RENAL IMPAIRMENT [None]
  - SCAB [None]
  - SCAR [None]
  - SECRETION DISCHARGE [None]
  - SKIN EXFOLIATION [None]
  - SWELLING FACE [None]
  - THERAPEUTIC AGENT TOXICITY [None]
  - URTICARIA [None]
  - VOMITING [None]
